FAERS Safety Report 6344117-3 (Version None)
Quarter: 2009Q3

REPORT INFORMATION
  Report Type: 
  Country: None (occurrence: None)
  Receive Date: 20090904
  Receipt Date: 20090904
  Transmission Date: 20100115
  Serious: Yes (Life-Threatening)
  Sender: FDA-Public Use
  Company Number: None

PATIENT
  Age: 73 Year
  Sex: Female
  Weight: 90.7194 kg

DRUGS (2)
  1. VYTORIN [Suspect]
     Indication: BLOOD CHOLESTEROL
     Dosage: 1 TABLET BEDTIME PO
     Route: 048
     Dates: start: 20060615, end: 20060715
  2. NYSTATIN [Suspect]
     Indication: CANDIDIASIS
     Dosage: SWISH/SWALLO 1 TSP. 4 X DAILY PO
     Route: 048
     Dates: start: 20060719, end: 20060801

REACTIONS (8)
  - CANDIDIASIS [None]
  - DECREASED APPETITE [None]
  - DIZZINESS [None]
  - GASTROINTESTINAL DISORDER [None]
  - HEADACHE [None]
  - INJURY [None]
  - MYODESOPSIA [None]
  - SINUS DISORDER [None]
